FAERS Safety Report 4932518-7 (Version None)
Quarter: 2006Q1

REPORT INFORMATION
  Report Type: 
  Country: None (occurrence: None)
  Receive Date: 20060228
  Receipt Date: 20060203
  Transmission Date: 20060701
  Serious: Yes (Hospitalization)
  Sender: FDA-Public Use
  Company Number: US200602001382

PATIENT
  Age: 63 Year
  Sex: Female

DRUGS (3)
  1. HUMALOG [Suspect]
     Indication: DIABETES MELLITUS
     Dates: start: 20050722
  2. LANTUS [Concomitant]
  3. METFORMIN HCL [Concomitant]

REACTIONS (3)
  - BLOOD GLUCOSE INCREASED [None]
  - PHARYNGITIS [None]
  - POOR QUALITY DRUG ADMINISTERED [None]
